FAERS Safety Report 7098853-4 (Version None)
Quarter: 2010Q4

REPORT INFORMATION
  Report Type: 
  Country: None (occurrence: None)
  Receive Date: 20101112
  Receipt Date: 20101104
  Transmission Date: 20110411
  Serious: Yes (Other)
  Sender: FDA-Public Use
  Company Number: US-ROCHE-739276

PATIENT
  Sex: Female

DRUGS (1)
  1. BONIVA [Suspect]
     Dosage: THERAPY DURATION: 1.5 YEARS
     Route: 065

REACTIONS (3)
  - BACK PAIN [None]
  - PAIN IN EXTREMITY [None]
  - SPINAL FRACTURE [None]
